FAERS Safety Report 4977860-9 (Version None)
Quarter: 2006Q2

REPORT INFORMATION
  Report Type: 
  Country: None (occurrence: None)
  Receive Date: 20060420
  Receipt Date: 20060328
  Transmission Date: 20061013
  Serious: Yes (Hospitalization)
  Sender: FDA-Public Use
  Company Number: JP-GLAXOSMITHKLINE-B0418233A

PATIENT
  Age: 73 Year
  Sex: Male
  Weight: 45 kg

DRUGS (1)
  1. SERETIDE [Suspect]
     Indication: CHRONIC OBSTRUCTIVE PULMONARY DISEASE
     Route: 055
     Dates: start: 20050906, end: 20060328

REACTIONS (11)
  - ABDOMINAL DISTENSION [None]
  - ANOREXIA [None]
  - ASCITES [None]
  - CYSTITIS HAEMORRHAGIC [None]
  - DECREASED APPETITE [None]
  - DIARRHOEA [None]
  - GASTRIC ULCER [None]
  - HAEMATURIA [None]
  - LEUKODERMA [None]
  - OESOPHAGEAL CANDIDIASIS [None]
  - POST PROCEDURAL COMPLICATION [None]
